FAERS Safety Report 21974588 (Version 1)
Quarter: 2023Q1

REPORT INFORMATION
  Report Type: Spontaneous
  Country: US (occurrence: US)
  Receive Date: 20230209
  Receipt Date: 20230209
  Transmission Date: 20230417
  Serious: No
  Sender: FDA-Public Use
  Company Number: US-PFIZER INC-202300060906

PATIENT
  Age: 37 Year
  Sex: Female

DRUGS (3)
  1. PAXLOVID [Suspect]
     Active Substance: NIRMATRELVIR\RITONAVIR
     Indication: COVID-19 treatment
     Dosage: UNK
     Dates: start: 20230128, end: 20230201
  2. METHIMAZOLE [Concomitant]
     Active Substance: METHIMAZOLE
     Dosage: UNK
     Dates: start: 20220901, end: 20230208
  3. METOPROLOL SUCCINATE [Concomitant]
     Active Substance: METOPROLOL SUCCINATE
     Dosage: UNK
     Dates: start: 20220801, end: 20230208

REACTIONS (2)
  - Disease recurrence [Recovering/Resolving]
  - COVID-19 [Recovering/Resolving]

NARRATIVE: CASE EVENT DATE: 20230205
